FAERS Safety Report 18421934 (Version 2)
Quarter: 2020Q4

REPORT INFORMATION
  Report Type: Spontaneous
  Country: US (occurrence: US)
  Receive Date: 20201023
  Receipt Date: 20201231
  Transmission Date: 20210114
  Serious: Yes (Death, Other)
  Sender: FDA-Public Use
  Company Number: US-AMGEN-USASP2020168707

PATIENT
  Sex: Female

DRUGS (6)
  1. LEUCOVORIN CA [Suspect]
     Active Substance: LEUCOVORIN CALCIUM
     Indication: BREAST CANCER STAGE II
     Dosage: 500 MILLIGRAM PER MILLILITRE, CYCLICAL, (ON DAYS 1, 2, 3)
     Route: 040
  2. ADRIAMYCIN [Suspect]
     Active Substance: DOXORUBICIN HYDROCHLORIDE
     Indication: BREAST CANCER STAGE II
     Dosage: 15 MILLIGRAM PER MILLILITRE, CYCLICAL, (ON DAYS 1, 2, 3)
     Route: 040
  3. FILGRASTIM [Suspect]
     Active Substance: FILGRASTIM
     Indication: PROPHYLAXIS
     Dosage: UNK, AFTER CHEMO
     Route: 065
  4. FILGRASTIM [Suspect]
     Active Substance: FILGRASTIM
     Indication: BREAST CANCER STAGE II
  5. 5-FLUOROURACIL [FLUOROURACIL] [Suspect]
     Active Substance: FLUOROURACIL
     Indication: BREAST CANCER STAGE II
     Dosage: 400 MILLIGRAM PER MILLILITRE, CYCLICAL, (ON DAYS 1, 2, 3)
     Route: 040
  6. CYCLOPHOSPHAMIDE. [Suspect]
     Active Substance: CYCLOPHOSPHAMIDE
     Indication: BREAST CANCER STAGE II
     Dosage: 600 MILLIGRAM PER MILLILITRE, CYCLICAL, (ON DAY 1)
     Route: 040

REACTIONS (4)
  - Colon cancer [Fatal]
  - Road traffic accident [Fatal]
  - Lymphoedema [Unknown]
  - Paraesthesia [Unknown]
